FAERS Safety Report 5531734-3 (Version None)
Quarter: 2007Q4

REPORT INFORMATION
  Report Type: 
  Country: None (occurrence: None)
  Receive Date: 20071128
  Receipt Date: 20071128
  Transmission Date: 20080405
  Serious: Yes (Hospitalization)
  Sender: FDA-Public Use
  Company Number: None

PATIENT
  Age: 52 Year
  Sex: Female
  Weight: 66.2252 kg

DRUGS (3)
  1. CETUXIMAB [Suspect]
     Indication: BREAST CANCER METASTATIC
     Dosage: 425 MG WEEKLY IV
     Route: 042
     Dates: start: 20070316, end: 20071002
  2. CARBOPLATIN [Suspect]
     Dosage: 174 MG WEEKLY IV
     Route: 042
     Dates: start: 20070316, end: 20071002
  3. VICODIN [Concomitant]

REACTIONS (9)
  - DERMATITIS ACNEIFORM [None]
  - DISEASE PROGRESSION [None]
  - ERYTHEMA [None]
  - FEBRILE NEUTROPENIA [None]
  - FOLLICULITIS [None]
  - PAIN [None]
  - RASH MACULAR [None]
  - RASH PUSTULAR [None]
  - WHITE BLOOD CELL COUNT DECREASED [None]
